FAERS Safety Report 15759492 (Version 1)
Quarter: 2018Q4

REPORT INFORMATION
  Report Type: Spontaneous
  Country: US (occurrence: US)
  Receive Date: 20181226
  Receipt Date: 20181226
  Transmission Date: 20190205
  Serious: No
  Sender: FDA-Public Use
  Company Number: US-SUN PHARMACEUTICAL INDUSTRIES LTD-2018US-169785

PATIENT
  Sex: Female

DRUGS (1)
  1. ACETAMINOPHEN. [Suspect]
     Active Substance: ACETAMINOPHEN
     Indication: ARTHRALGIA
     Dosage: UNK, (TOOK 1 CAPLETS FIRST WAITED AN HOURS AND THEN TOOK ANOTHER CAPLET)
     Route: 065

REACTIONS (2)
  - Incorrect product administration duration [Unknown]
  - Insomnia [Unknown]
